FAERS Safety Report 25215096 (Version 1)
Quarter: 2025Q2

REPORT INFORMATION
  Report Type: Spontaneous
  Country: GB (occurrence: GB)
  Receive Date: 20250418
  Receipt Date: 20250418
  Transmission Date: 20250717
  Serious: Yes (Disabling)
  Sender: GALPHARM INTERNATIONAL
  Company Number: None

PATIENT
  Age: 67 Year
  Sex: Female

DRUGS (1)
  1. PERMETHRIN [Suspect]
     Active Substance: PERMETHRIN
     Indication: Product used for unknown indication
     Route: 065
     Dates: end: 20250404

REACTIONS (1)
  - Hypoaesthesia [Not Recovered/Not Resolved]

NARRATIVE: CASE EVENT DATE: 20250403
